FAERS Safety Report 7121129-3 (Version None)
Quarter: 2010Q4

REPORT INFORMATION
  Report Type: 
  Country: None (occurrence: None)
  Receive Date: 20101124
  Receipt Date: 20100401
  Transmission Date: 20110411
  Serious: Yes (Other)
  Sender: FDA-Public Use
  Company Number: US-PFIZER INC-2010042575

PATIENT
  Sex: Female
  Weight: 92 kg

DRUGS (3)
  1. TIKOSYN [Suspect]
     Indication: ATRIAL FLUTTER
     Dosage: 500 UG, 2X/DAY
     Dates: start: 20100316
  2. INSULIN [Concomitant]
     Indication: DIABETES MELLITUS
     Dosage: UNK
  3. LASIX [Concomitant]
     Dosage: UNK

REACTIONS (1)
  - ELECTROCARDIOGRAM QT PROLONGED [None]
